FAERS Safety Report 20545735 (Version 1)
Quarter: 2022Q1

REPORT INFORMATION
  Report Type: Spontaneous
  Country: US (occurrence: None)
  Receive Date: 20220303
  Receipt Date: 20220303
  Transmission Date: 20220423
  Serious: Yes (Other)
  Sender: FDA-Public Use
  Company Number: 2022A087292

PATIENT
  Sex: Male
  Weight: 86.2 kg

DRUGS (1)
  1. BUDESONIDE\FORMOTEROL\GLYCOPYRRONIUM [Suspect]
     Active Substance: BUDESONIDE\FORMOTEROL\GLYCOPYRRONIUM
     Indication: Chronic obstructive pulmonary disease
     Dosage: 160 MCG- 9 MCG- 4.8 MCG 2 PUFFS, TWO TIMES A DAY
     Route: 055
     Dates: start: 202202

REACTIONS (1)
  - Blood glucose increased [Unknown]
